FAERS Safety Report 25624387 (Version 1)
Quarter: 2025Q3

REPORT INFORMATION
  Report Type: Spontaneous
  Country: US (occurrence: US)
  Receive Date: 20250730
  Receipt Date: 20250730
  Transmission Date: 20251021
  Serious: Yes (Death, Hospitalization)
  Sender: VERTEX
  Company Number: US-VERTEX PHARMACEUTICALS DOOEL SKOPJ-2023-006414

PATIENT
  Sex: Male
  Weight: 51 kg

DRUGS (1)
  1. TRIKAFTA [Suspect]
     Active Substance: ELEXACAFTOR\IVACAFTOR\TEZACAFTOR
     Indication: Cystic fibrosis
     Dosage: 2 ORANGE TABLETS IN THE AM AND 1 BLUE TABLET IN PM
     Route: 048

REACTIONS (2)
  - Death [Fatal]
  - Infective pulmonary exacerbation of cystic fibrosis [Not Recovered/Not Resolved]
